FAERS Safety Report 10994820 (Version 1)
Quarter: 2015Q2

REPORT INFORMATION
  Report Type: Spontaneous
  Country: GB (occurrence: GB)
  Receive Date: 20150407
  Receipt Date: 20150407
  Transmission Date: 20150821
  Serious: Yes (Other)
  Sender: FDA-Public Use
  Company Number: GB-JNJFOC-20150322156

PATIENT
  Sex: Male

DRUGS (2)
  1. REGAINE EXTRA STRENGTH-MENS (5%) [Suspect]
     Active Substance: MINOXIDIL
     Indication: ALOPECIA
     Route: 065
     Dates: start: 201503, end: 201503
  2. REGAINE EXTRA STRENGTH-MENS (5%) [Suspect]
     Active Substance: MINOXIDIL
     Route: 065

REACTIONS (10)
  - Pericardial effusion [Unknown]
  - Pain in extremity [Unknown]
  - Paraesthesia [Unknown]
  - Chest pain [Unknown]
  - Musculoskeletal stiffness [Unknown]
  - Headache [Unknown]
  - Rash erythematous [Unknown]
  - Heart rate increased [Unknown]
  - Viral infection [Unknown]
  - Pleural effusion [Unknown]
